FAERS Safety Report 4323054-X (Version None)
Quarter: 2004Q1

REPORT INFORMATION
  Report Type: 
  Country: None (occurrence: None)
  Receive Date: 20040322
  Receipt Date: 20040316
  Transmission Date: 20041129
  Serious: Yes (Death, Life-Threatening)
  Sender: FDA-Public Use
  Company Number: ENDC20040016

PATIENT
  Age: 38 Year
  Sex: Male

DRUGS (1)
  1. ENDOCET UNK ENDO [Suspect]
     Dates: end: 20020301

REACTIONS (3)
  - APNOEA [None]
  - ARRHYTHMIA [None]
  - PULMONARY FUNCTION TEST ABNORMAL [None]
